FAERS Safety Report 12977659 (Version 1)
Quarter: 2016Q4

REPORT INFORMATION
  Report Type: Spontaneous
  Country: US (occurrence: US)
  Receive Date: 20161128
  Receipt Date: 20161128
  Transmission Date: 20170207
  Serious: No
  Sender: FDA-Public Use
  Company Number: US-BAYER-2016-224046

PATIENT
  Age: 40 Year
  Sex: Female

DRUGS (11)
  1. DEPAKOTE [Concomitant]
     Active Substance: DIVALPROEX SODIUM
  2. ALBUTEROL SULFATE. [Concomitant]
     Active Substance: ALBUTEROL SULFATE
  3. VENTOLIN HFA [Concomitant]
     Active Substance: ALBUTEROL SULFATE
  4. DEMADEX [Concomitant]
     Active Substance: TORSEMIDE
  5. PRAVACHOL [Concomitant]
     Active Substance: PRAVASTATIN SODIUM
  6. ATENOLOL. [Concomitant]
     Active Substance: ATENOLOL
  7. GLUCOSAMINA [Concomitant]
  8. ALEVE [Suspect]
     Active Substance: NAPROXEN SODIUM
  9. NIFEDIPINE. [Concomitant]
     Active Substance: NIFEDIPINE
  10. ADVAIR DISKUS [Concomitant]
     Active Substance: FLUTICASONE PROPIONATE\SALMETEROL XINAFOATE
  11. SPIRIVA [Concomitant]
     Active Substance: TIOTROPIUM BROMIDE MONOHYDRATE

REACTIONS (1)
  - Urticaria [Unknown]

NARRATIVE: CASE EVENT DATE: 20161027
